FAERS Safety Report 12774933 (Version 2)
Quarter: 2017Q1

REPORT INFORMATION
  Report Type: Spontaneous
  Country: GB (occurrence: GB)
  Receive Date: 20160923
  Receipt Date: 20170127
  Transmission Date: 20170428
  Serious: Yes (Death, Hospitalization)
  Sender: FDA-Public Use
  Company Number: GB-TEVA-693725ACC

PATIENT
  Age: 91 Year
  Sex: Female

DRUGS (4)
  1. FUROSEMIDE. [Concomitant]
     Active Substance: FUROSEMIDE
     Indication: CARDIAC FAILURE CONGESTIVE
  2. CALCIUM [Concomitant]
     Active Substance: CALCIUM
  3. RAMIPRIL. [Suspect]
     Active Substance: RAMIPRIL
     Indication: HYPERTENSION
     Dates: start: 20160818, end: 20160820
  4. ASPIRIN. [Concomitant]
     Active Substance: ASPIRIN
     Indication: ANTICOAGULANT THERAPY

REACTIONS (9)
  - Pneumonia aspiration [Fatal]
  - Productive cough [Recovering/Resolving]
  - Wrong technique in product usage process [Unknown]
  - Bronchospasm [Recovered/Resolved]
  - Angioedema [Recovering/Resolving]
  - Hypopnoea [Recovered/Resolved]
  - Cerebrovascular accident [Fatal]
  - Dysphagia [Unknown]
  - Hypotension [Unknown]

NARRATIVE: CASE EVENT DATE: 20160818
